FAERS Safety Report 21096181 (Version 2)
Quarter: 2022Q3

REPORT INFORMATION
  Report Type: Spontaneous
  Country: JP (occurrence: JP)
  Receive Date: 20220718
  Receipt Date: 20220729
  Transmission Date: 20221027
  Serious: Yes (Other)
  Sender: FDA-Public Use
  Company Number: JP-ONO-2022JP019526

PATIENT
  Age: 73 Year
  Sex: Male

DRUGS (1)
  1. OPDIVO [Suspect]
     Active Substance: NIVOLUMAB
     Indication: Gastric cancer
     Dosage: UNK
     Route: 041

REACTIONS (8)
  - Pericardial effusion [Unknown]
  - Pyrexia [Unknown]
  - Liver function test increased [Unknown]
  - Malaise [Unknown]
  - Adrenocorticotropic hormone deficiency [Recovering/Resolving]
  - Decreased appetite [Unknown]
  - Blood corticotrophin decreased [Unknown]
  - Cortisol decreased [Unknown]
